FAERS Safety Report 15408357 (Version 1)
Quarter: 2018Q3

REPORT INFORMATION
  Report Type: Spontaneous
  Country: JP (occurrence: JP)
  Receive Date: 20180920
  Receipt Date: 20180920
  Transmission Date: 20181010
  Serious: Yes (Other)
  Sender: FDA-Public Use
  Company Number: JP-ASTRAZENECA-2018SF18411

PATIENT
  Age: 62 Year
  Sex: Male

DRUGS (1)
  1. IMFINZI [Suspect]
     Active Substance: DURVALUMAB
     Indication: NON-SMALL CELL LUNG CANCER
     Route: 042
     Dates: start: 20180814, end: 20180816

REACTIONS (2)
  - Lung abscess [Recovered/Resolved]
  - Pneumonitis [Recovered/Resolved]

NARRATIVE: CASE EVENT DATE: 20180816
